FAERS Safety Report 4539734-7 (Version None)
Quarter: 2004Q4

REPORT INFORMATION
  Report Type: 
  Country: None (occurrence: None)
  Receive Date: 20041222
  Receipt Date: 20041209
  Transmission Date: 20050328
  Serious: Yes (Hospitalization, Other)
  Sender: FDA-Public Use
  Company Number: 2004242578US

PATIENT
  Sex: Male
  Weight: 131.5431 kg

DRUGS (2)
  1. CELEBREX [Suspect]
     Indication: ARTHRITIS
     Dates: start: 20010301, end: 20041101
  2. NITROGLYCERIN [Concomitant]

REACTIONS (1)
  - CARDIAC DISORDER [None]
